FAERS Safety Report 12568771 (Version 2)
Quarter: 2016Q3

REPORT INFORMATION
  Report Type: Spontaneous
  Country: JP (occurrence: JP)
  Receive Date: 20160719
  Receipt Date: 20160804
  Transmission Date: 20161109
  Serious: Yes (Other)
  Sender: FDA-Public Use
  Company Number: JP-ASTRAZENECA-2016SE57230

PATIENT
  Age: 13085 Day
  Sex: Female
  Weight: 42 kg

DRUGS (1)
  1. SYMBICORT [Suspect]
     Active Substance: BUDESONIDE\FORMOTEROL FUMARATE DIHYDRATE
     Dosage: 1 PUFF TWICE DAILY
     Route: 055
     Dates: start: 20160520, end: 20160521

REACTIONS (4)
  - Pruritus [Recovered/Resolved]
  - Immune thrombocytopenic purpura [Recovered/Resolved]
  - Face oedema [Recovered/Resolved]
  - Drug eruption [Recovered/Resolved]

NARRATIVE: CASE EVENT DATE: 20160521
